FAERS Safety Report 18622774 (Version 4)
Quarter: 2022Q2

REPORT INFORMATION
  Report Type: Report from Study
  Country: JP (occurrence: JP)
  Receive Date: 20201216
  Receipt Date: 20220411
  Transmission Date: 20220721
  Serious: Yes (Hospitalization)
  Sender: FDA-Public Use
  Company Number: JP-PFIZER INC-2020494704

PATIENT
  Age: 76 Year
  Sex: Female
  Weight: 45.9 kg

DRUGS (17)
  1. VYNDAQEL [Suspect]
     Active Substance: TAFAMIDIS MEGLUMINE
     Indication: Cardiac amyloidosis
     Dosage: 80 MG, 1X/DAY (IN THE MORNING)
     Route: 048
     Dates: start: 20200302
  2. OLMESARTAN [Concomitant]
     Active Substance: OLMESARTAN
     Indication: Cardiac failure
     Dosage: 40 MG, 1X/DAY (IN THE MORNING)
     Route: 048
     Dates: start: 20190309
  3. OLMESARTAN [Concomitant]
     Active Substance: OLMESARTAN
     Indication: Hypertension
  4. OLMESARTAN [Concomitant]
     Active Substance: OLMESARTAN
     Indication: Cardiac amyloidosis
  5. AZOSEMIDE [Concomitant]
     Active Substance: AZOSEMIDE
     Indication: Oedema due to cardiac disease
     Dosage: 15 MG, 1X/DAY (IN THE MORNING)
     Route: 048
     Dates: start: 20190309
  6. AZOSEMIDE [Concomitant]
     Active Substance: AZOSEMIDE
     Indication: Cardiac failure
  7. AZOSEMIDE [Concomitant]
     Active Substance: AZOSEMIDE
     Indication: Cardiac amyloidosis
  8. SAMSCA [Concomitant]
     Active Substance: TOLVAPTAN
     Indication: Cardiac failure
     Dosage: 3.75 MG, 1X/DAY (IN THE MORNING)
     Route: 048
     Dates: start: 20190527
  9. SAMSCA [Concomitant]
     Active Substance: TOLVAPTAN
     Indication: Oedema due to cardiac disease
  10. SAMSCA [Concomitant]
     Active Substance: TOLVAPTAN
     Indication: Cardiac amyloidosis
  11. EDOXABAN TOSYLATE [Concomitant]
     Active Substance: EDOXABAN TOSYLATE
     Indication: Atrial fibrillation
     Dosage: 30 MG, 1X/DAY (IN THE MORNING)
     Route: 048
     Dates: start: 20190930, end: 20201220
  12. ROSUVASTATIN NIPRO [Concomitant]
     Indication: Dyslipidaemia
     Dosage: 2.5 MG, 1X/DAY (IN THE MORNING)
     Route: 048
     Dates: start: 20190309
  13. ROSUVASTATIN NIPRO [Concomitant]
     Indication: Hypercholesterolaemia
  14. METHOTREXATE [Concomitant]
     Active Substance: METHOTREXATE
     Dosage: UNK
     Route: 048
  15. AZULFIDINE [Concomitant]
     Active Substance: SULFASALAZINE
     Dosage: UNK
     Route: 048
  16. FOLIC ACID [Concomitant]
     Active Substance: FOLIC ACID
     Dosage: UNK
     Route: 048
  17. MINODRONIC ACID [Concomitant]
     Active Substance: MINODRONIC ACID
     Dosage: UNK
     Route: 048

REACTIONS (1)
  - Cardiac failure [Recovering/Resolving]

NARRATIVE: CASE EVENT DATE: 20200413
